FAERS Safety Report 17371144 (Version 1)
Quarter: 2020Q1

REPORT INFORMATION
  Report Type: Spontaneous
  Country: US (occurrence: US)
  Receive Date: 20200205
  Receipt Date: 20200205
  Transmission Date: 20200409
  Serious: Yes (Other)
  Sender: FDA-Public Use
  Company Number: US-SA-2020SA028507

PATIENT
  Sex: Male

DRUGS (1)
  1. ZANTAC 75 [Suspect]
     Active Substance: RANITIDINE HYDROCHLORIDE
     Dosage: 150-300 MG EVERY DAY
     Dates: start: 2009, end: 2019

REACTIONS (2)
  - Bladder cancer [Unknown]
  - Anxiety [Unknown]

NARRATIVE: CASE EVENT DATE: 2014
